FAERS Safety Report 12094458 (Version 1)
Quarter: 2016Q1

REPORT INFORMATION
  Report Type: Spontaneous
  Country: US (occurrence: US)
  Receive Date: 20160219
  Receipt Date: 20160219
  Transmission Date: 20160526
  Serious: Yes (Hospitalization, Other)
  Sender: FDA-Public Use
  Company Number: US-JNJFOC-20160216020

PATIENT
  Age: 81 Year
  Sex: Female
  Weight: 64 kg

DRUGS (18)
  1. MULTIVITAMINS W/MINERALS [Concomitant]
  2. FISH OIL [Concomitant]
     Active Substance: FISH OIL
  3. LEXAPRO [Concomitant]
     Active Substance: ESCITALOPRAM OXALATE
  4. IMBRUVICA [Suspect]
     Active Substance: IBRUTINIB
     Indication: CHRONIC LYMPHOCYTIC LEUKAEMIA
     Route: 048
  5. TOCOPHEROL [Concomitant]
     Active Substance: TOCOPHEROL
  6. EPOGEN [Concomitant]
     Active Substance: ERYTHROPOIETIN
     Dosage: 10000 UNIT
  7. ALLOPURINOL. [Concomitant]
     Active Substance: ALLOPURINOL
  8. FLORASTOR [Concomitant]
     Active Substance: SACCHAROMYCES CEREVISIAE
  9. MAG-OX [Concomitant]
     Active Substance: MAGNESIUM OXIDE
  10. OMEPRAZOLE. [Concomitant]
     Active Substance: OMEPRAZOLE
  11. VITAMIN B12 [Concomitant]
     Active Substance: CYANOCOBALAMIN
  12. VITAMIN C [Concomitant]
     Active Substance: ASCORBIC ACID
  13. IMBRUVICA [Suspect]
     Active Substance: IBRUTINIB
     Indication: CHRONIC LYMPHOCYTIC LEUKAEMIA
     Route: 048
     Dates: start: 201512
  14. VITAMIN D [Concomitant]
     Active Substance: CHOLECALCIFEROL
  15. COREG [Concomitant]
     Active Substance: CARVEDILOL
  16. COQ10 [Concomitant]
     Active Substance: UBIDECARENONE
  17. POTASSIUM [Concomitant]
     Active Substance: POTASSIUM
  18. LEVOTHYROXINE. [Concomitant]
     Active Substance: LEVOTHYROXINE

REACTIONS (11)
  - Nausea [Not Recovered/Not Resolved]
  - Headache [Not Recovered/Not Resolved]
  - Pulmonary oedema [Not Recovered/Not Resolved]
  - Vomiting [Not Recovered/Not Resolved]
  - Fatigue [Not Recovered/Not Resolved]
  - Large intestine perforation [Recovering/Resolving]
  - Drug dose omission [Unknown]
  - Infection [Not Recovered/Not Resolved]
  - Weight decreased [Not Recovered/Not Resolved]
  - Diarrhoea [Not Recovered/Not Resolved]
  - Constipation [Not Recovered/Not Resolved]

NARRATIVE: CASE EVENT DATE: 20160207
